FAERS Safety Report 15369899 (Version 1)
Quarter: 2018Q3

REPORT INFORMATION
  Report Type: Spontaneous
  Country: ES (occurrence: ES)
  Receive Date: 20180911
  Receipt Date: 20180911
  Transmission Date: 20181010
  Serious: Yes (Hospitalization, Other)
  Sender: FDA-Public Use
  Company Number: ES-ALVOGEN-2018-ALVOGEN-097234

PATIENT
  Age: 50 Year
  Sex: Male

DRUGS (2)
  1. SORAFENIB [Suspect]
     Active Substance: SORAFENIB
     Indication: THYROID CANCER
     Dosage: 400MG/12H
  2. DOXORUBICIN [Suspect]
     Active Substance: DOXORUBICIN
     Indication: THYROID CANCER
     Dosage: 20 MG/M2

REACTIONS (6)
  - Renal failure [Recovered/Resolved]
  - Hypocalcaemia [Recovered/Resolved]
  - Therapy partial responder [Unknown]
  - Oesophageal infection [Recovered/Resolved]
  - Anaemia [Recovered/Resolved]
  - Mucosal inflammation [Recovered/Resolved]
